FAERS Safety Report 24953281 (Version 1)
Quarter: 2025Q1

REPORT INFORMATION
  Report Type: Spontaneous
  Country: CA (occurrence: CA)
  Receive Date: 20250211
  Receipt Date: 20250211
  Transmission Date: 20250408
  Serious: Yes (Other)
  Sender: CSL BEHRING
  Company Number: CA-BEH-2025194496

PATIENT
  Sex: Female

DRUGS (36)
  1. HUMAN IMMUNOGLOBULIN G [Suspect]
     Active Substance: HUMAN IMMUNOGLOBULIN G
     Indication: Primary immunodeficiency syndrome
     Route: 065
  2. ASPIRIN [Concomitant]
     Active Substance: ASPIRIN
     Indication: Product used for unknown indication
     Route: 065
  3. AMLODIPINE [Concomitant]
     Active Substance: AMLODIPINE BESYLATE
     Indication: Product used for unknown indication
  4. Bifidobacterium animalis;Bifidobacterium bifidum;Lactobacillus acidoph [Concomitant]
     Indication: Dyspepsia
     Dosage: UNK, QD (1 EVERY 1 DAYS)
  5. CALCIUM [Concomitant]
     Active Substance: CALCIUM
     Indication: Osteoporosis
  6. CANNABIDIOL [Concomitant]
     Active Substance: CANNABIDIOL
     Indication: Inflammation
     Dosage: 1 ML, QD (1 EVERY 1 DAYS)
  7. CANNABIS SATIVA FLOWERING TOP [Concomitant]
     Active Substance: CANNABIS SATIVA FLOWERING TOP
     Indication: Sleep disorder
     Dosage: 500 MG, TID (3 EVERY 1 DAYS)
  8. CEFUROXIME [Concomitant]
     Active Substance: CEFUROXIME
  9. CEFUROXIME [Concomitant]
     Active Substance: CEFUROXIME
     Dosage: 500 MG, QD (1 EVERY 1 DAYS)
  10. CELEBREX [Concomitant]
     Active Substance: CELECOXIB
     Indication: Product used for unknown indication
  11. CHONDROITIN [Concomitant]
     Active Substance: CHONDROITIN
     Indication: Arthritis
     Dosage: 400 MG, TID (3 EVERY 1 DAYS)
  12. CURCUMIN [Concomitant]
     Active Substance: CURCUMIN
     Indication: Inflammation
     Dosage: 400 MG, QD (1 EVERY 1 DAYS)
  13. DEXILANT [Concomitant]
     Active Substance: DEXLANSOPRAZOLE
     Indication: Product used for unknown indication
  14. LEVOTHYROXINE [Concomitant]
     Active Substance: LEVOTHYROXINE
  15. GLUCOSAMINE [Concomitant]
     Active Substance: GLUCOSAMINE
     Indication: Arthritis
     Dosage: 400 MG, TID (3 EVERY 1 DAYS)
  16. GLUCOSAMINE;METHYLSULFONYLMETHANE [Concomitant]
     Indication: Arthritis
  17. HYDROXYCHLOROQUINE [Concomitant]
     Active Substance: HYDROXYCHLOROQUINE
     Indication: Rheumatoid arthritis
     Dosage: 400 MG, QD (1 EVERY 1 DAYS)
  18. IRBESARTAN [Concomitant]
     Active Substance: IRBESARTAN
     Indication: Hypertension
     Dosage: 75 MG, QD (1 EVERY 1 DAYS)
  19. LEVOFLOXACIN [Concomitant]
     Active Substance: LEVOFLOXACIN
  20. MAGNESIUM CITRATE [Concomitant]
     Active Substance: MAGNESIUM CITRATE
     Indication: Muscle spasms
     Dosage: UNK, QD (1 EVERY 1 DAYS)
  21. SODIUM CHLORIDE [Concomitant]
     Active Substance: SODIUM CHLORIDE
     Indication: Product used for unknown indication
  22. AZITHROMYCIN ANHYDROUS [Concomitant]
     Active Substance: AZITHROMYCIN ANHYDROUS
     Dosage: 250 MG, QD (1 EVERY 1 DAYS)
  23. AZITHROMYCIN ANHYDROUS [Concomitant]
     Active Substance: AZITHROMYCIN ANHYDROUS
  24. PREDNISONE [Concomitant]
     Active Substance: PREDNISONE
  25. PROLIA [Concomitant]
     Active Substance: DENOSUMAB
     Indication: Osteoporosis
  26. PULMICORT TURBUHALER [Concomitant]
     Active Substance: BUDESONIDE
     Indication: Sinusitis
     Dosage: UNK, BID (2 EVERY 1 DAYS)
  27. Reactine [Concomitant]
     Indication: Product used for unknown indication
  28. RISEDRONATE SODIUM [Concomitant]
     Active Substance: RISEDRONATE SODIUM
     Indication: Product used for unknown indication
  29. ALBUTEROL [Concomitant]
     Active Substance: ALBUTEROL
     Indication: Product used for unknown indication
  30. SODIUM CHLORIDE [Concomitant]
     Active Substance: SODIUM CHLORIDE
     Indication: Sinusitis
     Dosage: UNK, QD (1 EVERY 1 DAYS)
  31. MINERALS\VITAMINS [Concomitant]
     Active Substance: MINERALS\VITAMINS
     Indication: Product used for unknown indication
  32. VITAMIN B COMPLEX [Concomitant]
     Active Substance: CYANOCOBALAMIN\DEXPANTHENOL\NIACINAMIDE\PYRIDOXINE HYDROCHLORIDE\RIBOFLAVIN 5^-PHOSPHATE SODIUM\THIA
     Indication: Infection
     Dosage: UNK, QD (1 EVERY 1 DAYS)
  33. VITAMIN D3 [Concomitant]
     Active Substance: CHOLECALCIFEROL
     Indication: Osteoporosis
  34. ZANTAC [Concomitant]
     Active Substance: RANITIDINE HYDROCHLORIDE
     Indication: Product used for unknown indication
  35. ZOPICLONE [Concomitant]
     Active Substance: ZOPICLONE
     Indication: Product used for unknown indication
  36. OMNARIS [Concomitant]
     Active Substance: CICLESONIDE
     Indication: Sinusitis

REACTIONS (3)
  - Diverticulitis [Unknown]
  - Irritable bowel syndrome [Unknown]
  - Arthritis [Unknown]
